FAERS Safety Report 6816749-7 (Version None)
Quarter: 2010Q3

REPORT INFORMATION
  Report Type: 
  Country: None (occurrence: None)
  Receive Date: 20100706
  Receipt Date: 20100622
  Transmission Date: 20110219
  Serious: Yes (Other)
  Sender: FDA-Public Use
  Company Number: PHHY2010FR40758

PATIENT
  Sex: Female

DRUGS (3)
  1. LEPONEX [Suspect]
     Indication: PSYCHOTIC DISORDER
     Dosage: UNK
     Route: 048
     Dates: start: 20040101
  2. TERALITHE [Suspect]
     Indication: PSYCHOTIC DISORDER
     Dosage: UNK
     Route: 048
     Dates: start: 20040101
  3. TERCIAN [Suspect]
     Indication: PSYCHOTIC DISORDER
     Dosage: UNK
     Route: 048
     Dates: start: 20040101

REACTIONS (6)
  - CYST DRAINAGE [None]
  - DERMAL CYST [None]
  - EXERESIS [None]
  - HIRSUTISM [None]
  - INFLAMMATION [None]
  - SEBACEOUS GLANDS OVERACTIVITY [None]
